FAERS Safety Report 21746649 (Version 2)
Quarter: 2022Q4

REPORT INFORMATION
  Report Type: Report from Study
  Country: None (occurrence: US)
  Receive Date: 20221219
  Receipt Date: 20221222
  Transmission Date: 20230113
  Serious: Yes (Other)
  Sender: FDA-Public Use
  Company Number: US-AKCEA THERAPEUTICS, INC.-2021IS001991

PATIENT
  Age: 53 Year
  Sex: Female
  Weight: 94.091 kg

DRUGS (2)
  1. TEGSEDI [Suspect]
     Active Substance: INOTERSEN SODIUM
     Indication: Hereditary neuropathic amyloidosis
     Route: 058
     Dates: start: 20211216, end: 20221028
  2. DEVICE [Suspect]
     Active Substance: DEVICE

REACTIONS (12)
  - Renal impairment [Unknown]
  - Pain [Unknown]
  - Rash macular [Unknown]
  - Platelet count increased [Unknown]
  - Injection site pruritus [Unknown]
  - Glomerular filtration rate decreased [Unknown]
  - Blood creatinine abnormal [Unknown]
  - Creatinine urine increased [Unknown]
  - Protein urine present [Unknown]
  - Urinary sediment present [Unknown]
  - Bacterial test positive [Unknown]
  - Urinary casts present [Unknown]

NARRATIVE: CASE EVENT DATE: 20220630
